FAERS Safety Report 16111538 (Version 2)
Quarter: 2019Q2

REPORT INFORMATION
  Report Type: Report from Study
  Country: US (occurrence: US)
  Receive Date: 20190325
  Receipt Date: 20190530
  Transmission Date: 20190711
  Serious: Yes (Other)
  Sender: FDA-Public Use
  Company Number: US-MALLINCKRODT-T201902419

PATIENT
  Sex: Female

DRUGS (3)
  1. REPOSITORY CORTICOTROPIN INJECTION [Suspect]
     Active Substance: CORTICOTROPIN
     Indication: RHEUMATOID ARTHRITIS
     Dosage: 20 UNITS /0.25 ML, 2 TIMES PER WEEK
     Route: 030
     Dates: start: 20180515, end: 201905
  2. ACTEMRA [Concomitant]
     Active Substance: TOCILIZUMAB
     Indication: PRODUCT USED FOR UNKNOWN INDICATION
     Dosage: UNK
     Route: 065
  3. METHOTREXATE. [Concomitant]
     Active Substance: METHOTREXATE
     Indication: PRODUCT USED FOR UNKNOWN INDICATION
     Dosage: UNK, 1 TIMES PER WEEK
     Route: 065

REACTIONS (4)
  - Weight increased [Unknown]
  - Blood glucose fluctuation [Not Recovered/Not Resolved]
  - Incontinence [Not Recovered/Not Resolved]
  - Headache [Unknown]
